FAERS Safety Report 4952591-X (Version None)
Quarter: 2006Q1

REPORT INFORMATION
  Report Type: 
  Country: None (occurrence: None)
  Receive Date: 20060317
  Receipt Date: 20060308
  Transmission Date: 20060701
  Serious: Yes (Disabling, Other)
  Sender: FDA-Public Use
  Company Number: 2005-05-1221

PATIENT
  Age: 60 Year
  Sex: Female
  Weight: 99.7913 kg

DRUGS (6)
  1. TEMOZOLOMIDE STUDY CAPSULES [Suspect]
     Indication: METASTASES TO CENTRAL NERVOUS SYSTEM
     Dosage: 160 MG QD ORAL
     Route: 048
     Dates: start: 20050117, end: 20050206
  2. NEXIUM [Concomitant]
  3. AMBIEN [Concomitant]
  4. ADVIL [Concomitant]
  5. CARBOPLATIN [Concomitant]
  6. TAXOL [Concomitant]

REACTIONS (13)
  - ANAEMIA [None]
  - BALANCE DISORDER [None]
  - COGNITIVE DISORDER [None]
  - DIZZINESS [None]
  - HEMIPARESIS [None]
  - HYPOKALAEMIA [None]
  - IMPAIRED DRIVING ABILITY [None]
  - METASTASIS [None]
  - RADIATION INJURY [None]
  - ROAD TRAFFIC ACCIDENT [None]
  - VASCULITIS CEREBRAL [None]
  - VISION BLURRED [None]
  - VISUAL FIELD DEFECT [None]
